FAERS Safety Report 12442979 (Version 1)
Quarter: 2016Q2

REPORT INFORMATION
  Report Type: Spontaneous
  Country: US (occurrence: None)
  Receive Date: 20160606
  Receipt Date: 20160606
  Transmission Date: 20160815
  Serious: Yes (Hospitalization, Other)
  Sender: FDA-Public Use
  Company Number: None

PATIENT
  Age: 69 Year
  Sex: Male
  Weight: 158.76 kg

DRUGS (13)
  1. PROSTATE PQ [Concomitant]
  2. OXYBUTININ [Concomitant]
     Active Substance: OXYBUTYNIN
  3. CENTRUM [Concomitant]
     Active Substance: VITAMINS
  4. METFORMIN [Concomitant]
     Active Substance: METFORMIN HYDROCHLORIDE
  5. PRAVOCHOL [Concomitant]
  6. LISINOPRIL  HCL [Concomitant]
     Active Substance: HYDROCHLOROTHIAZIDE\LISINOPRIL
  7. SAW PALMETTO [Concomitant]
     Active Substance: SAW PALMETTO
  8. ECOTRIN [Concomitant]
     Active Substance: ASPIRIN
  9. FLOMAX [Concomitant]
     Active Substance: TAMSULOSIN HYDROCHLORIDE
  10. POTASSIUM [Concomitant]
     Active Substance: POTASSIUM
  11. TRULICITY [Suspect]
     Active Substance: DULAGLUTIDE
     Indication: TYPE 2 DIABETES MELLITUS
     Route: 030
     Dates: start: 20160416, end: 20160430
  12. VICTOZA [Concomitant]
     Active Substance: LIRAGLUTIDE
  13. LASIX [Concomitant]
     Active Substance: FUROSEMIDE

REACTIONS (7)
  - Muscular weakness [None]
  - Dizziness [None]
  - Headache [None]
  - Abdominal pain upper [None]
  - Abasia [None]
  - Feeling abnormal [None]
  - Chest pain [None]

NARRATIVE: CASE EVENT DATE: 20160430
